FAERS Safety Report 10274735 (Version 2)
Quarter: 2014Q3

REPORT INFORMATION
  Report Type: Spontaneous
  Country: SN (occurrence: SN)
  Receive Date: 20140702
  Receipt Date: 20140707
  Transmission Date: 20150326
  Serious: Yes (Life-Threatening, Hospitalization, Other)
  Sender: FDA-Public Use
  Company Number: SN-PFIZER INC-2014181339

PATIENT
  Age: 22 Year
  Sex: Female

DRUGS (1)
  1. ARTOTEC [Suspect]
     Active Substance: DICLOFENAC SODIUM\MISOPROSTOL
     Indication: ABORTION INDUCED
     Dosage: 1 DF, SINGLE
     Route: 048
     Dates: start: 20140627, end: 20140627

REACTIONS (4)
  - Vaginal haemorrhage [Recovered/Resolved]
  - Off label use [Unknown]
  - Anaemia [Recovered/Resolved]
  - Endometritis decidual [Recovered/Resolved]
